FAERS Safety Report 6550103-0 (Version None)
Quarter: 2010Q1

REPORT INFORMATION
  Report Type: 
  Country: None (occurrence: None)
  Receive Date: 20100125
  Receipt Date: 20100113
  Transmission Date: 20100710
  Serious: Yes (Other)
  Sender: FDA-Public Use
  Company Number: JP-PFIZER INC-2010006000

PATIENT
  Age: 70 Year
  Sex: Male

DRUGS (4)
  1. CHAMPIX [Suspect]
     Indication: NICOTINE DEPENDENCE
     Dosage: 1 MG, 1X/DAY
     Route: 048
     Dates: start: 20091222, end: 20100102
  2. CHAMPIX [Suspect]
     Dosage: 0.5 MG, 1X/DAY
     Route: 048
     Dates: start: 20091212, end: 20091214
  3. CHAMPIX [Suspect]
     Dosage: 0.5 MG, 2X/DAY
     Route: 048
     Dates: start: 20091215, end: 20091218
  4. CHAMPIX [Suspect]
     Dosage: 1 MG, 2X/DAY
     Route: 048
     Dates: start: 20091219, end: 20091221

REACTIONS (3)
  - EXTRADURAL HAEMATOMA [None]
  - FALL [None]
  - LOSS OF CONSCIOUSNESS [None]
